FAERS Safety Report 25272416 (Version 1)
Quarter: 2025Q2

REPORT INFORMATION
  Report Type: Spontaneous
  Country: US (occurrence: US)
  Receive Date: 20250506
  Receipt Date: 20250506
  Transmission Date: 20250717
  Serious: Yes (Hospitalization)
  Sender: MYLAN
  Company Number: US-MYLANLABS-2025M1036915

PATIENT
  Age: 31 Year
  Sex: Female

DRUGS (17)
  1. FENTANYL [Suspect]
     Active Substance: FENTANYL
     Indication: Cancer pain
     Dosage: 1100 MICROGRAM, QH, INFUSION
  2. FENTANYL [Suspect]
     Active Substance: FENTANYL
     Indication: Pain
  3. FENTANYL [Suspect]
     Active Substance: FENTANYL
     Dosage: 1600 MICROGRAM, QH, CLINICIAN BOLUS 1600 MCG EVERY HOUR AS NEEDED
  4. METHADONE [Suspect]
     Active Substance: METHADONE HYDROCHLORIDE
     Indication: Pain
     Dosage: 150 MILLIGRAM, Q8H
  5. METHADONE [Suspect]
     Active Substance: METHADONE HYDROCHLORIDE
     Indication: Cancer pain
  6. PREGABALIN [Suspect]
     Active Substance: PREGABALIN
     Indication: Pain
     Dosage: 200 MILLIGRAM, Q8H
  7. PREGABALIN [Suspect]
     Active Substance: PREGABALIN
     Indication: Cancer pain
  8. FENTANYL [Suspect]
     Active Substance: FENTANYL
     Indication: Pain
     Dosage: 800 MICROGRAM, Q3H,EVERY 3 HOUR AS NEEDED
  9. FENTANYL [Suspect]
     Active Substance: FENTANYL
     Indication: Cancer pain
  10. FENTANYL TRANSDERMAL SYSTEM [Suspect]
     Active Substance: FENTANYL
     Indication: Pain
  11. FENTANYL TRANSDERMAL SYSTEM [Suspect]
     Active Substance: FENTANYL
     Indication: Cancer pain
  12. KETAMINE [Suspect]
     Active Substance: KETAMINE
     Indication: Cancer pain
     Dosage: 30 MILLIGRAM, QH, INFUSION
  13. KETAMINE [Suspect]
     Active Substance: KETAMINE
     Indication: Pain
  14. LORAZEPAM [Suspect]
     Active Substance: LORAZEPAM
     Indication: Cancer pain
     Dosage: 1 MILLIGRAM, Q4H, EVERY 4 HOUR AS NEEDED
  15. LORAZEPAM [Suspect]
     Active Substance: LORAZEPAM
     Indication: Pain
  16. NORTRIPTYLINE [Suspect]
     Active Substance: NORTRIPTYLINE
     Indication: Cancer pain
     Dosage: 75 MILLIGRAM, HS (EVERY NIGHT AT BEDTIME)
  17. NORTRIPTYLINE [Suspect]
     Active Substance: NORTRIPTYLINE
     Indication: Pain

REACTIONS (1)
  - Drug ineffective [Unknown]
